FAERS Safety Report 4338214-1 (Version None)
Quarter: 2004Q2

REPORT INFORMATION
  Report Type: 
  Country: None (occurrence: None)
  Receive Date: 20040408
  Receipt Date: 20040401
  Transmission Date: 20050107
  Serious: Yes (Other)
  Sender: FDA-Public Use
  Company Number: 2004-03-1541

PATIENT
  Age: 57 Year
  Sex: Female
  Weight: 70 kg

DRUGS (2)
  1. CLARITIN [Suspect]
     Dosage: 10 MG BID ORAL
     Route: 048
  2. LORATADINE [Suspect]

REACTIONS (4)
  - HYPERSENSITIVITY [None]
  - LARYNGEAL DYSPNOEA [None]
  - PHARMACEUTICAL PRODUCT COMPLAINT [None]
  - URTICARIA GENERALISED [None]
